FAERS Safety Report 5046792-2 (Version None)
Quarter: 2006Q3

REPORT INFORMATION
  Report Type: 
  Country: None (occurrence: None)
  Receive Date: 20060705
  Receipt Date: 20060705
  Transmission Date: 20061208
  Serious: No
  Sender: FDA-Public Use
  Company Number: None

PATIENT
  Sex: Female

DRUGS (1)
  1. ALBUTEROL HFA- [Suspect]
     Dosage: 2 PUFFS Q 4-6 HR PRN

REACTIONS (1)
  - DIZZINESS [None]
